FAERS Safety Report 7225410-9 (Version None)
Quarter: 2011Q1

REPORT INFORMATION
  Report Type: 
  Country: None (occurrence: None)
  Receive Date: 20110113
  Receipt Date: 20110110
  Transmission Date: 20110831
  Serious: Yes (Hospitalization, Other)
  Sender: FDA-Public Use
  Company Number: US-AMGEN-US302917

PATIENT

DRUGS (6)
  1. ENBREL [Suspect]
     Dosage: 25 MG, 2 TIMES/WK
     Route: 058
     Dates: start: 20001116
  2. PROVERA [Concomitant]
     Dosage: 30 MG, UNK
     Dates: start: 20020101
  3. ENBREL [Suspect]
     Dosage: 25 MG, 2 TIMES/WK
     Route: 058
     Dates: start: 20010301, end: 20010501
  4. ENBREL [Suspect]
     Dosage: 25 MG, 2 TIMES/WK
     Route: 058
     Dates: start: 20040101
  5. ENBREL [Suspect]
     Indication: RHEUMATOID ARTHRITIS
     Dosage: 25 MG, 2 TIMES/WK
     Route: 058
     Dates: start: 20001116
  6. ENBREL [Suspect]
     Dosage: 25 MG, 2 TIMES/WK
     Route: 058
     Dates: start: 20010827, end: 20030101

REACTIONS (7)
  - BACK PAIN [None]
  - INJECTION SITE HAEMATOMA [None]
  - PHLEBITIS [None]
  - ENDOMETRIOSIS [None]
  - MUSCLE SPASMS [None]
  - LAPAROSCOPY [None]
  - ATTENTION DEFICIT/HYPERACTIVITY DISORDER [None]
